FAERS Safety Report 8490334-6 (Version None)
Quarter: 2012Q3

REPORT INFORMATION
  Report Type: 
  Country: None (occurrence: None)
  Receive Date: 20120705
  Receipt Date: 20120702
  Transmission Date: 20120928
  Serious: Yes (Hospitalization)
  Sender: FDA-Public Use
  Company Number: FR-PFIZER INC-2012157536

PATIENT
  Age: 1 Day
  Sex: Female
  Weight: 2.215 kg

DRUGS (4)
  1. CYMBALTA [Suspect]
     Dosage: 60 MG, 1X/DAY
     Route: 064
     Dates: start: 20111016, end: 20120609
  2. ACETAMINOPHEN [Suspect]
     Route: 064
  3. XANAX [Suspect]
     Dosage: 0.5 MG, 2X/DAY
     Route: 064
     Dates: start: 20111016, end: 20120609
  4. XANAX [Suspect]
     Dosage: 60 MG, 1X/DAY
     Route: 064
     Dates: start: 20111016, end: 20120609

REACTIONS (2)
  - DRUG WITHDRAWAL SYNDROME NEONATAL [None]
  - MATERNAL EXPOSURE DURING PREGNANCY [None]
